FAERS Safety Report 11196053 (Version 2)
Quarter: 2015Q2

REPORT INFORMATION
  Report Type: Spontaneous
  Country: US (occurrence: US)
  Receive Date: 20150617
  Receipt Date: 20150624
  Transmission Date: 20150821
  Serious: Yes (Other)
  Sender: FDA-Public Use
  Company Number: US-APOTEX-2015AP009942

PATIENT

DRUGS (2)
  1. KETOCONAZOLE TABLETS USP [Suspect]
     Active Substance: KETOCONAZOLE
     Indication: TINEA VERSICOLOUR
     Dosage: 200 MG, QD
     Route: 065
  2. CEFADROXIL. [Concomitant]
     Active Substance: CEFADROXIL
     Indication: TINEA VERSICOLOUR
     Route: 065

REACTIONS (1)
  - Acute febrile neutrophilic dermatosis [Recovered/Resolved]
